FAERS Safety Report 7815131-3 (Version None)
Quarter: 2011Q4

REPORT INFORMATION
  Report Type: 
  Country: None (occurrence: None)
  Receive Date: 20111014
  Receipt Date: 20111004
  Transmission Date: 20120403
  Serious: Yes (Life-Threatening)
  Sender: FDA-Public Use
  Company Number: US-JNJFOC-20090101269

PATIENT
  Sex: Male
  Weight: 111.59 kg

DRUGS (12)
  1. BUDESONIDE [Concomitant]
     Indication: CROHN'S DISEASE
  2. REMICADE [Suspect]
     Route: 042
     Dates: start: 20030711
  3. PENTASA [Concomitant]
     Indication: CROHN'S DISEASE
  4. REMICADE [Suspect]
     Route: 042
     Dates: start: 20020710
  5. REMICADE [Suspect]
     Route: 042
     Dates: start: 20030911
  6. REMICADE [Suspect]
     Indication: CROHN'S DISEASE
     Route: 042
     Dates: start: 20021107
  7. REMICADE [Suspect]
     Route: 042
     Dates: start: 20020912
  8. REMICADE [Suspect]
     Route: 042
     Dates: start: 20030516
  9. REMICADE [Suspect]
     Dosage: 9 INFUSIONS ADMINISTERED SINCE BASELINE
     Route: 042
     Dates: start: 20031211
  10. REMICADE [Suspect]
     Route: 042
     Dates: start: 20030320
  11. MERCAPTOPURINE [Suspect]
     Indication: CROHN'S DISEASE
  12. REMICADE [Suspect]
     Route: 042
     Dates: start: 20030103

REACTIONS (1)
  - TONGUE NEOPLASM MALIGNANT STAGE UNSPECIFIED [None]
